FAERS Safety Report 15427696 (Version 1)
Quarter: 2018Q3

REPORT INFORMATION
  Report Type: Spontaneous
  Country: NG (occurrence: NG)
  Receive Date: 20180925
  Receipt Date: 20180925
  Transmission Date: 20181010
  Serious: Yes (Life-Threatening, Hospitalization)
  Sender: FDA-Public Use
  Company Number: NG-BAXTER-2018BAX024099

PATIENT
  Age: 31 Year
  Sex: Female
  Weight: 60 kg

DRUGS (14)
  1. FLUPHENAZINE [Suspect]
     Active Substance: FLUPHENAZINE
     Indication: ADJUSTMENT DISORDER
     Dosage: STAT
     Route: 030
  2. AMITRIPTYLLINE [Suspect]
     Active Substance: AMITRIPTYLINE
     Indication: DEPRESSIVE SYMPTOM
  3. ATRACURIUM [Concomitant]
     Active Substance: ATRACURIUM
     Indication: MAINTENANCE OF ANAESTHESIA
     Route: 042
  4. PARACETAMOL [Concomitant]
     Active Substance: ACETAMINOPHEN
     Indication: ANALGESIC THERAPY
     Route: 042
  5. KETOROLAC [Concomitant]
     Active Substance: KETOROLAC\KETOROLAC TROMETHAMINE
     Indication: ANALGESIC THERAPY
     Route: 042
  6. PROVIVE [Suspect]
     Active Substance: PROPOFOL
     Indication: INDUCTION OF ANAESTHESIA
     Route: 042
  7. BENZHEXOL [Suspect]
     Active Substance: TRIHEXYPHENIDYL
     Indication: ADJUSTMENT DISORDER
     Dosage: PRN
     Route: 048
  8. BENZHEXOL [Suspect]
     Active Substance: TRIHEXYPHENIDYL
     Indication: DEPRESSIVE SYMPTOM
  9. BUPICAN HEAVY [Suspect]
     Active Substance: BUPIVACAINE HYDROCHLORIDE
     Indication: INFILTRATION ANAESTHESIA
     Dosage: SURGICAL SITE WAS INFILTRATED
     Route: 065
  10. FLUPHENAZINE [Suspect]
     Active Substance: FLUPHENAZINE
     Indication: DEPRESSIVE SYMPTOM
  11. ISOFLURANE. [Suspect]
     Active Substance: ISOFLURANE
     Indication: MAINTENANCE OF ANAESTHESIA
     Dosage: IN OXYGEN?AIR MIXTURE
     Route: 055
  12. SUXAMETHONIUM [Concomitant]
     Active Substance: SUCCINYLCHOLINE
     Indication: ENDOTRACHEAL INTUBATION
     Route: 042
  13. AMITRIPTYLLINE [Suspect]
     Active Substance: AMITRIPTYLINE
     Indication: ADJUSTMENT DISORDER
     Route: 048
  14. TRAMADOL. [Concomitant]
     Active Substance: TRAMADOL
     Indication: ANALGESIC THERAPY
     Route: 042

REACTIONS (1)
  - Neuroleptic malignant syndrome [Recovered/Resolved]
